FAERS Safety Report 25732327 (Version 1)
Quarter: 2025Q3

REPORT INFORMATION
  Report Type: Spontaneous
  Country: US (occurrence: US)
  Receive Date: 20250827
  Receipt Date: 20250827
  Transmission Date: 20251020
  Serious: Yes (Hospitalization, Other)
  Sender: INCYTE
  Company Number: US-INCYTE CORPORATION-2025IN009184

PATIENT
  Age: 52 Year

DRUGS (2)
  1. JAKAFI [Suspect]
     Active Substance: RUXOLITINIB
     Indication: Graft versus host disease
     Dosage: 10 MILLIGRAM, BID
  2. JAKAFI [Suspect]
     Active Substance: RUXOLITINIB
     Indication: Bone marrow transplant

REACTIONS (5)
  - Respiratory syncytial virus infection [Recovering/Resolving]
  - Graft versus host disease [Unknown]
  - Condition aggravated [Unknown]
  - Asthma [Unknown]
  - Off label use [Unknown]
